FAERS Safety Report 10708045 (Version 2)
Quarter: 2015Q1

REPORT INFORMATION
  Report Type: Report from Study
  Country: US (occurrence: US)
  Receive Date: 20150113
  Receipt Date: 20150113
  Transmission Date: 20150721
  Serious: Yes (Hospitalization)
  Sender: FDA-Public Use
  Company Number: US-BAYER-2014-190565

PATIENT
  Age: 77 Year
  Sex: Male

DRUGS (2)
  1. NEXAVAR [Suspect]
     Active Substance: SORAFENIB
     Indication: GASTRIC CANCER
     Dosage: 200 MG, BID
     Route: 048
     Dates: start: 20141219, end: 20141223
  2. NEXAVAR [Suspect]
     Active Substance: SORAFENIB
     Indication: GASTRIC CANCER
     Dosage: 200 MG, BID
     Dates: end: 20141227

REACTIONS (7)
  - Asthenia [Not Recovered/Not Resolved]
  - Diarrhoea [Not Recovered/Not Resolved]
  - Fall [Not Recovered/Not Resolved]
  - Product use issue [None]
  - Gastritis [Not Recovered/Not Resolved]
  - Abdominal pain [None]
  - Acute kidney injury [Not Recovered/Not Resolved]

NARRATIVE: CASE EVENT DATE: 20141219
